FAERS Safety Report 5026233-1 (Version None)
Quarter: 2006Q2

REPORT INFORMATION
  Report Type: 
  Country: None (occurrence: None)
  Receive Date: 20060608
  Receipt Date: 20060414
  Transmission Date: 20061013
  Serious: Yes (Other)
  Sender: FDA-Public Use
  Company Number: 200614140GDDC

PATIENT
  Age: 50 Year
  Sex: Female

DRUGS (3)
  1. ARAVA [Suspect]
     Indication: PSORIATIC ARTHROPATHY
     Dosage: 20 MG/DAY PO
     Route: 048
     Dates: start: 20040501, end: 20060401
  2. ARAVA [Suspect]
     Indication: RHEUMATOID ARTHRITIS
     Dosage: 20 MG/DAY PO
     Route: 048
     Dates: start: 20040501, end: 20060401
  3. RISEDRONATE SODIUM [Concomitant]

REACTIONS (6)
  - ALANINE AMINOTRANSFERASE INCREASED [None]
  - ASPARTATE AMINOTRANSFERASE INCREASED [None]
  - FATIGUE [None]
  - GAMMA-GLUTAMYLTRANSFERASE INCREASED [None]
  - HIP ARTHROPLASTY [None]
  - JAUNDICE [None]
